FAERS Safety Report 4273668-0 (Version None)
Quarter: 2004Q1

REPORT INFORMATION
  Report Type: 
  Country: None (occurrence: None)
  Receive Date: 20040114
  Receipt Date: 20040102
  Transmission Date: 20041129
  Serious: Yes (Death)
  Sender: FDA-Public Use
  Company Number: 2004-DE-00005GD

PATIENT
  Age: 38 Year
  Sex: Male

DRUGS (4)
  1. AZATHIOPRINE [Suspect]
     Indication: IMMUNOSUPPRESSION
     Dosage: 1.5 MG/KG
  2. AZATHIOPRINE [Suspect]
     Indication: RENAL TRANSPLANT
     Dosage: 1.5 MG/KG
  3. CYCLOSPORINE [Concomitant]
  4. PREDNISOLONE [Concomitant]

REACTIONS (13)
  - CANDIDIASIS [None]
  - CARDIO-RESPIRATORY ARREST [None]
  - DIARRHOEA [None]
  - HYPOXIA [None]
  - PERITONITIS [None]
  - PLATELET COUNT DECREASED [None]
  - PNEUMONIA [None]
  - POST PROCEDURAL COMPLICATION [None]
  - PSEUDOMONAS INFECTION [None]
  - PULMONARY HAEMORRHAGE [None]
  - STENOTROPHOMONAS INFECTION [None]
  - UPPER GASTROINTESTINAL HAEMORRHAGE [None]
  - WHITE BLOOD CELL COUNT DECREASED [None]
